FAERS Safety Report 9080337 (Version 1)
Quarter: 2013Q1

REPORT INFORMATION
  Report Type: Report from Study
  Country: US (occurrence: US)
  Receive Date: 20130130
  Receipt Date: 20130130
  Transmission Date: 20140127
  Serious: Yes (Other)
  Sender: FDA-Public Use
  Company Number: US-ABBOTT-12P-163-0960513-00

PATIENT
  Age: 63 None
  Sex: Female
  Weight: 54.03 kg

DRUGS (18)
  1. HUMIRA 40 MG/0.8 ML PEN [Suspect]
     Indication: RHEUMATOID ARTHRITIS
     Dates: start: 20120705
  2. SYNTHROID [Concomitant]
     Indication: THYROID DISORDER
     Dosage: 50MG DAILY
  3. GABAPENTIN [Concomitant]
     Indication: NERVOUSNESS
     Dosage: 2 - 600MG TABLETS DAILY AT BEDTIME
  4. TRAZODONE [Concomitant]
     Indication: NERVOUSNESS
     Dosage: AT BEDTIME
  5. TRAZODONE [Concomitant]
     Indication: INSOMNIA
  6. LEXAPRO [Concomitant]
     Indication: DEPRESSION
  7. IRON [Concomitant]
     Indication: HAEMOGLOBIN DECREASED
  8. FOLIC ACID [Concomitant]
     Indication: PRODUCT USED FOR UNKNOWN INDICATION
  9. PRILOSEC [Concomitant]
     Indication: GASTROOESOPHAGEAL REFLUX DISEASE
  10. PRILOSEC [Concomitant]
     Indication: OESOPHAGEAL DILATION PROCEDURE
  11. KLONOPIN [Concomitant]
     Indication: PANIC ATTACK
  12. KLONOPIN [Concomitant]
     Indication: ANXIOLYTIC THERAPY
  13. BUSPIRONE [Concomitant]
     Indication: DEPRESSION
  14. METHOTREXATE [Concomitant]
     Indication: PRODUCT USED FOR UNKNOWN INDICATION
     Dosage: 7 - 25MG TABLETS ONCE WEEKLY
  15. B12 [Concomitant]
     Indication: ASTHENIA
  16. RECLAST [Concomitant]
     Indication: BACK DISORDER
     Route: 050
  17. RECLAST [Concomitant]
     Indication: BONE DISORDER
  18. DULERA [Concomitant]
     Indication: VOCAL CORD DISORDER

REACTIONS (5)
  - Spinal fracture [Not Recovered/Not Resolved]
  - Injection site bruising [Not Recovered/Not Resolved]
  - Weight decreased [Not Recovered/Not Resolved]
  - Decreased appetite [Not Recovered/Not Resolved]
  - Malaise [Not Recovered/Not Resolved]
